FAERS Safety Report 17816847 (Version 1)
Quarter: 2020Q2

REPORT INFORMATION
  Report Type: Report from Study
  Country: GT (occurrence: GT)
  Receive Date: 20200522
  Receipt Date: 20200522
  Transmission Date: 20200714
  Serious: Yes (Death)
  Sender: FDA-Public Use
  Company Number: NVSC2020GT140747

PATIENT
  Age: 90 Year
  Sex: Male

DRUGS (1)
  1. VYMADA [Suspect]
     Active Substance: SACUBITRIL\VALSARTAN
     Indication: PRODUCT USED FOR UNKNOWN INDICATION
     Dosage: 200 MG (STARTED A YEAR AGO APPROXIMATELY)
     Route: 065

REACTIONS (2)
  - General physical health deterioration [Fatal]
  - Chronic obstructive pulmonary disease [Fatal]
